FAERS Safety Report 16616258 (Version 3)
Quarter: 2019Q3

REPORT INFORMATION
  Report Type: Spontaneous
  Country: DE (occurrence: DE)
  Receive Date: 20190723
  Receipt Date: 20190730
  Transmission Date: 20191004
  Serious: Yes (Other)
  Sender: FDA-Public Use
  Company Number: DE-009507513-1907DEU012438

PATIENT
  Age: 74 Year
  Sex: Female

DRUGS (6)
  1. DORZOLAMIDE HYDROCHLORIDE. [Suspect]
     Active Substance: DORZOLAMIDE HYDROCHLORIDE
     Dosage: UNK ^2 ML DAILY^
     Route: 065
     Dates: start: 201809
  2. TIM-OPHTAL [Concomitant]
     Active Substance: TIMOLOL MALEATE
     Dosage: UNK
  3. DORZOLAMIDE HYDROCHLORIDE. [Suspect]
     Active Substance: DORZOLAMIDE HYDROCHLORIDE
     Indication: GLAUCOMA
     Dosage: UNK UNK, TID
     Route: 065
     Dates: start: 201501, end: 201504
  4. TAFLOTAN [Suspect]
     Active Substance: TAFLUPROST
     Dosage: UNK
     Route: 065
     Dates: start: 201501, end: 201504
  5. TAFLOTAN [Suspect]
     Active Substance: TAFLUPROST
     Dosage: UNK
     Route: 065
     Dates: start: 201809
  6. TIM-OPHTAL [Concomitant]
     Active Substance: TIMOLOL MALEATE
     Dosage: UNK
     Dates: start: 201809

REACTIONS (1)
  - Ureteric stenosis [Recovered/Resolved]

NARRATIVE: CASE EVENT DATE: 201504
